FAERS Safety Report 9140281 (Version 2)
Quarter: 2013Q1

REPORT INFORMATION
  Report Type: Report from Study
  Country: AU (occurrence: AU)
  Receive Date: 20130305
  Receipt Date: 20130306
  Transmission Date: 20140127
  Serious: Yes (Death, Life-Threatening, Hospitalization)
  Sender: FDA-Public Use
  Company Number: PHHO2013AU003255

PATIENT
  Age: 76 Year
  Sex: Male
  Weight: 91 kg

DRUGS (5)
  1. ALISKIREN [Suspect]
     Indication: CARDIAC FAILURE
     Dosage: UNKNOWN
     Route: 048
     Dates: start: 20090917, end: 20121124
  2. FUROSEMIDE [Concomitant]
     Indication: CARDIAC FAILURE
     Dosage: 80 MG MOR, 40 MG MED.
     Dates: start: 20120815, end: 20121124
  3. SPIRONOLACTONE [Concomitant]
     Indication: CARDIAC FAILURE
     Dosage: 12.5 MG, QD
     Dates: start: 20120814, end: 20121124
  4. DIGOXIN [Concomitant]
     Indication: CARDIAC FAILURE
     Dosage: 62.5 MG, QD
     Dates: start: 20050628, end: 20121124
  5. CARVEDILOL [Concomitant]
     Indication: CARDIAC FAILURE
     Dosage: 12.5 MG, QD
     Dates: start: 20000607, end: 20121124

REACTIONS (2)
  - Ischaemic cardiomyopathy [Fatal]
  - Ventricular tachycardia [Not Recovered/Not Resolved]
